FAERS Safety Report 6337865-2 (Version None)
Quarter: 2009Q3

REPORT INFORMATION
  Report Type: 
  Country: None (occurrence: None)
  Receive Date: 20090902
  Receipt Date: 20090825
  Transmission Date: 20100115
  Serious: Yes (Other)
  Sender: FDA-Public Use
  Company Number: B0590938A

PATIENT
  Sex: Female

DRUGS (1)
  1. AUGMENTIN [Suspect]
     Indication: BRONCHITIS
     Route: 065
     Dates: start: 20090822

REACTIONS (2)
  - GASTROINTESTINAL DISORDER [None]
  - HEPATIC ENZYME INCREASED [None]
